FAERS Safety Report 4916383-X (Version None)
Quarter: 2006Q1

REPORT INFORMATION
  Report Type: 
  Country: None (occurrence: None)
  Receive Date: 20060217
  Receipt Date: 20051031
  Transmission Date: 20060701
  Serious: Yes (Hospitalization)
  Sender: FDA-Public Use
  Company Number: US-MERCK-0511USA00316

PATIENT
  Age: 52 Year
  Sex: Female
  Weight: 64 kg

DRUGS (31)
  1. VIOXX [Suspect]
     Indication: OSTEOARTHRITIS
     Route: 048
     Dates: start: 19990601, end: 20041001
  2. RYTHMOL [Concomitant]
     Indication: ARRHYTHMIA
     Route: 065
     Dates: start: 19960101, end: 20051201
  3. VERAPAMIL HYDROCHLORIDE [Concomitant]
     Indication: CARDIAC DISORDER
     Route: 065
     Dates: start: 19960101
  4. PRILOSEC [Concomitant]
     Route: 065
  5. PROPAFENONE HYDROCHLORIDE [Concomitant]
     Route: 065
  6. RANITIDINE [Concomitant]
     Route: 065
  7. ADVAIR DISKUS 100/50 [Concomitant]
     Route: 065
  8. ALBUTEROL [Concomitant]
     Route: 065
  9. LORATADINE [Concomitant]
     Route: 065
  10. NASONEX [Concomitant]
     Route: 065
  11. ULTRACET [Concomitant]
     Route: 065
  12. CLONAZEPAM [Concomitant]
     Route: 065
  13. PAXIL [Concomitant]
     Route: 065
  14. KETEK [Concomitant]
     Route: 065
  15. PIROXICAM [Concomitant]
     Route: 065
  16. PREVACID [Concomitant]
     Route: 065
  17. HYDROCODONE BITARTRATE [Concomitant]
     Route: 065
  18. LORAZEPAM [Concomitant]
     Route: 065
  19. ETODOLAC [Concomitant]
     Route: 065
  20. ACETAMINOPHEN AND PROPOXYPHENE NAPSYLATE [Concomitant]
     Route: 065
  21. MIACALCIN [Concomitant]
     Route: 065
  22. BACLOFEN [Concomitant]
     Route: 065
  23. LEVAQUIN [Concomitant]
     Route: 065
  24. SINGULAIR [Concomitant]
     Route: 065
  25. PROVENTIL [Concomitant]
     Route: 065
  26. HEPARIN [Concomitant]
     Route: 065
  27. ASPIRIN [Concomitant]
     Route: 065
  28. ZOCOR [Concomitant]
     Route: 065
  29. NEURONTIN [Concomitant]
     Route: 065
  30. PREMPRO [Concomitant]
     Route: 065
  31. WELLBUTRIN [Concomitant]
     Route: 065

REACTIONS (3)
  - ANXIETY [None]
  - CEREBROVASCULAR ACCIDENT [None]
  - TRANSIENT ISCHAEMIC ATTACK [None]
